FAERS Safety Report 7041063-7 (Version None)
Quarter: 2010Q3

REPORT INFORMATION
  Report Type: 
  Country: None (occurrence: None)
  Receive Date: 20100929
  Receipt Date: 20100615
  Transmission Date: 20110219
  Serious: No
  Sender: FDA-Public Use
  Company Number: US-WYE-H15705910

PATIENT
  Age: 55 Year
  Sex: Female
  Weight: 113.5 kg

DRUGS (10)
  1. PRISTIQ [Suspect]
     Indication: DEPRESSION
     Dosage: ORAL
     Route: 048
     Dates: start: 20100101, end: 20100101
  2. PROTONIX [Concomitant]
  3. IRON (IRON) [Concomitant]
  4. GLYBURIDE [Concomitant]
  5. PAXIL [Concomitant]
  6. CADUET [Concomitant]
  7. JANUVIA [Concomitant]
  8. ACTOS [Concomitant]
  9. LISINOPRIL [Concomitant]
  10. FUROSEMIDE [Concomitant]

REACTIONS (6)
  - ASTHENIA [None]
  - CONDITION AGGRAVATED [None]
  - DIABETES MELLITUS [None]
  - DIZZINESS [None]
  - FEELING ABNORMAL [None]
  - HEADACHE [None]
